FAERS Safety Report 20282864 (Version 2)
Quarter: 2022Q1

REPORT INFORMATION
  Report Type: Spontaneous
  Country: GB (occurrence: GB)
  Receive Date: 20220103
  Receipt Date: 20220114
  Transmission Date: 20220424
  Serious: Yes (Hospitalization)
  Sender: FDA-Public Use
  Company Number: None

PATIENT

DRUGS (1)
  1. IBUPROFEN [Suspect]
     Active Substance: IBUPROFEN
     Indication: Overdose
     Dosage: UNK
     Route: 048

REACTIONS (2)
  - Pancreatitis acute [Recovered/Resolved with Sequelae]
  - Intentional overdose [Unknown]

NARRATIVE: CASE EVENT DATE: 20210901
